FAERS Safety Report 5011338-1 (Version None)
Quarter: 2006Q2

REPORT INFORMATION
  Report Type: 
  Country: None (occurrence: None)
  Receive Date: 20060524
  Receipt Date: 20060512
  Transmission Date: 20061013
  Serious: Yes (Hospitalization)
  Sender: FDA-Public Use
  Company Number: 2006PV013709

PATIENT
  Age: 62 Year
  Sex: Male

DRUGS (23)
  1. BYETTA [Suspect]
     Indication: DIABETES MELLITUS NON-INSULIN-DEPENDENT
     Dosage: 5 MCG; BID; SC
     Route: 058
     Dates: start: 20060330
  2. ACETAMINOPHEN [Concomitant]
  3. TRIAMCINOLONE [Concomitant]
  4. STARLIX [Concomitant]
  5. LANTUS [Concomitant]
  6. VYTORIN [Concomitant]
  7. CYMBALTA [Concomitant]
  8. AMBIEN [Concomitant]
  9. ANDRODERM [Concomitant]
  10. ATENOLOL [Concomitant]
  11. NITROQUICK [Concomitant]
  12. PLAVIX [Concomitant]
  13. LISINOPRIL [Concomitant]
  14. OXYGEN [Concomitant]
  15. ROXICODONE [Concomitant]
  16. NEURONTIN [Concomitant]
  17. PAXIL [Concomitant]
  18. PROVIGIL [Concomitant]
  19. MORPHINE PUMP [Concomitant]
  20. FUROSEMIDE [Concomitant]
  21. SPIRONOLACTONE [Concomitant]
  22. PANALGESIC GOLD [Concomitant]
  23. PRILOSEC [Concomitant]

REACTIONS (2)
  - DUODENITIS [None]
  - LIPASE INCREASED [None]
